FAERS Safety Report 4352948-4 (Version None)
Quarter: 2004Q2

REPORT INFORMATION
  Report Type: 
  Country: None (occurrence: None)
  Receive Date: 20040429
  Receipt Date: 20040423
  Transmission Date: 20050107
  Serious: Yes (Hospitalization)
  Sender: FDA-Public Use
  Company Number: 200403632

PATIENT
  Age: 60 Year
  Sex: Female

DRUGS (1)
  1. IBUPROFEN [Suspect]
     Indication: PAIN
     Dosage: 400 MG, TID. PO
     Route: 048
     Dates: end: 20031017

REACTIONS (3)
  - ABDOMINAL PAIN [None]
  - HAEMOPTYSIS [None]
  - VOMITING [None]
